FAERS Safety Report 15097880 (Version 1)
Quarter: 2018Q3

REPORT INFORMATION
  Report Type: Spontaneous
  Country: US (occurrence: US)
  Receive Date: 20180702
  Receipt Date: 20180702
  Transmission Date: 20181010
  Serious: No
  Sender: FDA-Public Use
  Company Number: US-PFM-2018-01824

PATIENT

DRUGS (1)
  1. HEMANGEOL [Suspect]
     Active Substance: PROPRANOLOL HYDROCHLORIDE
     Indication: HAEMANGIOMA
     Dosage: 1.4 ML, BID (2/DAY), INCREASE AS DIRECTED
     Route: 048
     Dates: start: 20171220

REACTIONS (5)
  - Vomiting [Recovered/Resolved]
  - Decreased appetite [Recovered/Resolved]
  - Drug administered to patient of inappropriate age [Unknown]
  - Erythema [Recovered/Resolved]
  - Off label use [Unknown]
